FAERS Safety Report 9708463 (Version 1)
Quarter: 2013Q4

REPORT INFORMATION
  Report Type: Spontaneous
  Country: US (occurrence: US)
  Receive Date: 20131125
  Receipt Date: 20131125
  Transmission Date: 20140711
  Serious: Yes (Other)
  Sender: FDA-Public Use
  Company Number: US-GILEAD-2013-0087529

PATIENT
  Age: 78 Year
  Sex: Female

DRUGS (5)
  1. RANEXA [Suspect]
     Indication: ANGINA PECTORIS
     Dosage: 500 MG, QD
     Route: 048
     Dates: start: 201302, end: 201306
  2. DILTIAZEM                          /00489702/ [Concomitant]
     Indication: ANGINA PECTORIS
     Dosage: 120 MG, QD
     Route: 048
  3. LISINOPRIL [Concomitant]
     Indication: HYPERTENSION
     Dosage: 10 MG, QD
     Route: 048
  4. BABY ASPIRIN [Concomitant]
     Indication: ANGINA PECTORIS
     Dosage: 81 MG, QD
     Route: 048
  5. ALBUTEROL                          /00139501/ [Concomitant]
     Indication: BRONCHOSPASM
     Dosage: UNK, PRN
     Route: 055

REACTIONS (2)
  - Drug ineffective [Unknown]
  - Constipation [Recovered/Resolved]
